FAERS Safety Report 23516357 (Version 1)
Quarter: 2024Q1

REPORT INFORMATION
  Report Type: Spontaneous
  Country: CN (occurrence: CN)
  Receive Date: 20240213
  Receipt Date: 20240213
  Transmission Date: 20240410
  Serious: Yes (Other)
  Sender: FDA-Public Use
  Company Number: None

PATIENT
  Age: 89 Year
  Sex: Male

DRUGS (10)
  1. LINEZOLID [Suspect]
     Active Substance: LINEZOLID
     Indication: Anti-infective therapy
     Dosage: 0.6 GRAM, BID (EVERY 12 HOUR)
     Route: 065
  2. AMIODARONE HYDROCHLORIDE [Concomitant]
     Active Substance: AMIODARONE HYDROCHLORIDE
     Indication: Pulmonary arterial hypertension
     Dosage: 0.3 MILLIGRAM
     Route: 042
  3. CEFTRIAXONE [Concomitant]
     Active Substance: CEFTRIAXONE\CEFTRIAXONE SODIUM
     Indication: Anti-infective therapy
     Dosage: UNK
     Route: 065
  4. DESLANOSIDE [Concomitant]
     Active Substance: DESLANOSIDE
     Indication: Pulmonary arterial hypertension
     Dosage: 0.2 MILLIGRAM
     Route: 042
  5. ESOMEPRAZOLE [Concomitant]
     Active Substance: ESOMEPRAZOLE
     Indication: Antacid therapy
     Dosage: 40 MILLIGRAM, QD  (EVERY 24 HOUR)
     Route: 065
  6. MEROPENEM [Concomitant]
     Active Substance: MEROPENEM
     Indication: Anti-infective therapy
     Dosage: 1 GRAM, TID (EVERY 8 HOUR) FOR 16 DAYS
     Route: 065
  7. OCTREOTIDE ACETATE [Concomitant]
     Active Substance: OCTREOTIDE ACETATE
     Indication: Product used for unknown indication
     Dosage: 0.3 MILLIGRAM, BID (EVERY 12 HOUR)
     Route: 042
  8. Sulbactum sodium [Concomitant]
     Indication: Anti-infective therapy
     Dosage: 3 GRAM, BID (EVERY 12 HOUR)
     Route: 065
  9. TEICOPLANIN [Concomitant]
     Active Substance: TEICOPLANIN
     Indication: Anti-infective therapy
     Dosage: 400 MILLIGRAM, QD (EVERY 24 HOUR) FOR 4 DAYS
     Route: 065
  10. TIGECYCLINE [Concomitant]
     Active Substance: TIGECYCLINE
     Indication: Anti-infective therapy
     Dosage: 50 MILLIGRAM, BID (EVERY 12 HOUR)
     Route: 065

REACTIONS (1)
  - Platelet count decreased [Unknown]
